FAERS Safety Report 9157907 (Version 2)
Quarter: 2014Q1

REPORT INFORMATION
  Report Type: Spontaneous
  Country: US (occurrence: US)
  Receive Date: 20130312
  Receipt Date: 20140321
  Transmission Date: 20141002
  Serious: Yes (Hospitalization, Other)
  Sender: FDA-Public Use
  Company Number: US-ROCHE-1020264

PATIENT
  Age: 44 Year
  Sex: Male
  Weight: 74.91 kg

DRUGS (1)
  1. ACCUTANE [Suspect]
     Indication: ACNE
     Route: 048
     Dates: start: 19910626, end: 199112

REACTIONS (5)
  - Crohn^s disease [Unknown]
  - Diverticulitis [Unknown]
  - Inflammatory bowel disease [Unknown]
  - Depression [Unknown]
  - Epistaxis [Unknown]
